FAERS Safety Report 6067413 (Version 4)
Quarter: 2017Q1

REPORT INFORMATION
  Report Type: Spontaneous
  Country: JP (occurrence: JP)
  Receive Date: 20060619
  Receipt Date: 20170213
  Transmission Date: 20170429
  Serious: Yes (Other)
  Sender: FDA-Public Use
  Company Number: JP-BRISTOL-MYERS SQUIBB COMPANY-13406103

PATIENT
  Age: 76 Year
  Sex: Female

DRUGS (2)
  1. TAXOL [Suspect]
     Active Substance: PACLITAXEL
     Indication: OVARIAN CANCER
     Dosage: 175 MG/M2, QMO
     Route: 042
     Dates: start: 20031208, end: 20040105
  2. PARAPLATIN [Suspect]
     Active Substance: CARBOPLATIN
     Indication: OVARIAN CANCER
     Dosage: UNK
     Route: 042
     Dates: start: 20031208, end: 20040105

REACTIONS (4)
  - Acute kidney injury [Unknown]
  - Rectal prolapse [Unknown]
  - Septic shock [Unknown]
  - Candida sepsis [Recovered/Resolved]

NARRATIVE: CASE EVENT DATE: 20040123
